FAERS Safety Report 18621927 (Version 1)
Quarter: 2020Q4

REPORT INFORMATION
  Report Type: Spontaneous
  Country: KR (occurrence: KR)
  Receive Date: 20201216
  Receipt Date: 20201216
  Transmission Date: 20210114
  Serious: Yes (Other)
  Sender: FDA-Public Use
  Company Number: KR-SUN PHARMACEUTICAL INDUSTRIES LTD-2020RR-271476

PATIENT
  Age: 71 Year
  Sex: Male

DRUGS (5)
  1. CAPECITABINE. [Suspect]
     Active Substance: CAPECITABINE
     Indication: CHEMOTHERAPY
     Dosage: UNK
     Route: 065
  2. OXALIPLATIN. [Suspect]
     Active Substance: OXALIPLATIN
     Indication: CHEMOTHERAPY
     Dosage: UNK
     Route: 065
  3. CALCIUM FOLINAT [Suspect]
     Active Substance: LEUCOVORIN CALCIUM
     Indication: CHEMOTHERAPY
     Dosage: UNK
     Route: 065
  4. IRINOTECAN [Suspect]
     Active Substance: IRINOTECAN
     Indication: CHEMOTHERAPY
     Dosage: UNK
     Route: 065
  5. 5-FLUOROURACIL [Suspect]
     Active Substance: FLUOROURACIL
     Indication: CHEMOTHERAPY
     Dosage: UNK
     Route: 065

REACTIONS (4)
  - Asthenia [Unknown]
  - Abdominal distension [Unknown]
  - Refusal of treatment by patient [Unknown]
  - Vomiting [Unknown]
